FAERS Safety Report 7234643-7 (Version None)
Quarter: 2011Q1

REPORT INFORMATION
  Report Type: 
  Country: None (occurrence: None)
  Receive Date: 20110120
  Receipt Date: 20110110
  Transmission Date: 20110831
  Serious: No
  Sender: FDA-Public Use
  Company Number: US-BIOGENIDEC-2010BI042803

PATIENT
  Age: 54 Year
  Sex: Female

DRUGS (1)
  1. TYSABRI [Suspect]
     Indication: MULTIPLE SCLEROSIS
     Route: 042
     Dates: start: 20101026, end: 20101203

REACTIONS (6)
  - CHEST PAIN [None]
  - HOT FLUSH [None]
  - NAUSEA [None]
  - FLUSHING [None]
  - DYSPNOEA [None]
  - OXYGEN SATURATION DECREASED [None]
